FAERS Safety Report 4436518-5 (Version None)
Quarter: 2004Q3

REPORT INFORMATION
  Report Type: 
  Country: None (occurrence: None)
  Receive Date: 20040830
  Receipt Date: 20040608
  Transmission Date: 20050211
  Serious: No
  Sender: FDA-Public Use
  Company Number: US-BRISTOL-MYERS SQUIBB COMPANY-12608824

PATIENT
  Age: 56 Year
  Sex: Female
  Weight: 105 kg

DRUGS (1)
  1. ABILIFY [Suspect]
     Indication: OBSESSIVE-COMPULSIVE DISORDER
     Dosage: STARTING DOSE 2.25MG, INCREASED TO A MAXIMUM DOSE OF 20 MG/DAY. DECREASED UNTIL DISC.
     Route: 048
     Dates: start: 20030301, end: 20040413

REACTIONS (1)
  - TREMOR [None]
